FAERS Safety Report 6747631-1 (Version None)
Quarter: 2010Q2

REPORT INFORMATION
  Report Type: 
  Country: None (occurrence: None)
  Receive Date: 20100528
  Receipt Date: 20100520
  Transmission Date: 20101027
  Serious: Yes (Hospitalization)
  Sender: FDA-Public Use
  Company Number: PHHO2010CN07552

PATIENT
  Sex: Male
  Weight: 75 kg

DRUGS (1)
  1. LDT600 LDT+TAB [Suspect]
     Dosage: 600MG / DAILY
     Route: 048
     Dates: start: 20090706, end: 20100519

REACTIONS (9)
  - BACK PAIN [None]
  - BLOOD CREATINE PHOSPHOKINASE INCREASED [None]
  - DECREASED APPETITE [None]
  - FATIGUE [None]
  - MUSCULOSKELETAL CHEST PAIN [None]
  - MUSCULOSKELETAL PAIN [None]
  - MYALGIA [None]
  - NAUSEA [None]
  - VOMITING [None]
